FAERS Safety Report 5203923-9 (Version None)
Quarter: 2007Q1

REPORT INFORMATION
  Report Type: 
  Country: None (occurrence: None)
  Receive Date: 20070105
  Receipt Date: 20061227
  Transmission Date: 20070707
  Serious: Yes (Hospitalization)
  Sender: FDA-Public Use
  Company Number: WAES 0612USA03944

PATIENT
  Age: 54 Year
  Sex: Male

DRUGS (3)
  1. DECADRON [Suspect]
     Dosage: SEE IMAGE
  2. TEMODAR [Suspect]
     Indication: GLIOBLASTOMA MULTIFORME
     Dosage: 2835 MG
     Dates: start: 20060822, end: 20061120
  3. THERAPY UNSPECIFIRED [Concomitant]

REACTIONS (10)
  - CONFUSIONAL STATE [None]
  - DEHYDRATION [None]
  - LOCALISED OEDEMA [None]
  - MENTAL STATUS CHANGES [None]
  - MUSCULAR WEAKNESS [None]
  - NAUSEA [None]
  - OEDEMA [None]
  - ORAL INTAKE REDUCED [None]
  - PYREXIA [None]
  - VOMITING [None]
